FAERS Safety Report 11975842 (Version 1)
Quarter: 2016Q1

REPORT INFORMATION
  Report Type: Report from Study
  Country: EC (occurrence: EC)
  Receive Date: 20160129
  Receipt Date: 20160129
  Transmission Date: 20160526
  Serious: Yes (Hospitalization)
  Sender: FDA-Public Use
  Company Number: EC-ROCHE-1693526

PATIENT
  Sex: Female

DRUGS (1)
  1. AVASTIN [Suspect]
     Active Substance: BEVACIZUMAB
     Indication: BREAST CANCER
     Route: 042
     Dates: start: 20151221

REACTIONS (4)
  - Gastrointestinal infection [Recovered/Resolved]
  - Hypertension [Recovered/Resolved]
  - Decreased immune responsiveness [Recovered/Resolved]
  - Drug dose omission [Unknown]
